FAERS Safety Report 15288171 (Version 1)
Quarter: 2018Q3

REPORT INFORMATION
  Report Type: Spontaneous
  Country: US (occurrence: US)
  Receive Date: 20180802
  Receipt Date: 20180802
  Transmission Date: 20181010
  Serious: No
  Sender: FDA-Public Use
  Company Number: None

PATIENT
  Sex: Female

DRUGS (7)
  1. HYDROCO [Concomitant]
  2. DEXAMETHASON [Concomitant]
     Active Substance: DEXAMETHASONE
  3. MAGNESIUM?OX [Concomitant]
  4. FLUOXETINE [Concomitant]
     Active Substance: FLUOXETINE HYDROCHLORIDE
  5. NINLARO [Suspect]
     Active Substance: IXAZOMIB CITRATE
     Indication: PLASMA CELL MYELOMA
     Dosage: ?          OTHER FREQUENCY:ONCEAWKFOR3WKS;?
     Route: 048
     Dates: start: 20180721
  6. METFORMIN [Concomitant]
     Active Substance: METFORMIN HYDROCHLORIDE
  7. APAP [Concomitant]
     Active Substance: ACETAMINOPHEN

REACTIONS (4)
  - Diarrhoea [None]
  - Neuropathy peripheral [None]
  - Pyrexia [None]
  - Nausea [None]
